FAERS Safety Report 5595782-X (Version None)
Quarter: 2008Q1

REPORT INFORMATION
  Report Type: 
  Country: None (occurrence: None)
  Receive Date: 20080118
  Receipt Date: 20080110
  Transmission Date: 20080703
  Serious: Yes (Hospitalization)
  Sender: FDA-Public Use
  Company Number: B0503208A

PATIENT
  Age: 79 Year
  Sex: Female
  Weight: 48 kg

DRUGS (8)
  1. DEROXAT [Suspect]
     Dosage: 20MG PER DAY
     Route: 048
  2. ERYTHROMYCIN ETHYLSUCCINATE [Suspect]
     Indication: PERTUSSIS
     Dosage: 2G PER DAY
     Route: 048
     Dates: start: 20070706, end: 20070708
  3. PROPOFAN [Suspect]
     Indication: PAIN
     Dosage: 2UNIT AS REQUIRED
     Route: 048
  4. PREVISCAN [Suspect]
     Indication: PHLEBITIS
     Dosage: 1.5UNIT PER DAY
     Route: 048
     Dates: start: 20070708
  5. TIORFAN [Concomitant]
     Dosage: 1UNIT PER DAY
     Route: 048
     Dates: end: 20070711
  6. ENDOTELON [Concomitant]
     Dosage: 300MG PER DAY
     Route: 048
     Dates: end: 20070708
  7. INEXIUM [Concomitant]
     Dosage: 20MG PER DAY
     Route: 048
  8. OSTEOPOROSIS MEDICATION [Concomitant]
     Indication: OSTEOPOROSIS
     Dosage: 1TAB WEEKLY
     Route: 048

REACTIONS (6)
  - ABDOMINAL PAIN [None]
  - ABDOMINAL WALL HAEMATOMA [None]
  - DIVERTICULUM [None]
  - DRUG INTERACTION [None]
  - MUSCLE HAEMORRHAGE [None]
  - RED BLOOD CELL COUNT DECREASED [None]
